FAERS Safety Report 8738421 (Version 2)
Quarter: 2012Q4

REPORT INFORMATION
  Report Type: 
  Country: US (occurrence: US)
  Receive Date: 20120823
  Receipt Date: 20121009
  Transmission Date: 20130627
  Serious: Yes (Other)
  Sender: FDA-Public Use
  Company Number: US-BAYER-2012-086232

PATIENT
  Age: 44 Year
  Sex: Male
  Weight: 68.03 kg

DRUGS (1)
  1. BETASERON [Suspect]
     Indication: RELAPSING-REMITTING MULTIPLE SCLEROSIS
     Dosage: 0.3 mg, 2 x a week
     Route: 058
     Dates: start: 1995

REACTIONS (2)
  - Grand mal convulsion [Recovering/Resolving]
  - Scar [None]
